FAERS Safety Report 5377635-5 (Version None)
Quarter: 2007Q3

REPORT INFORMATION
  Report Type: 
  Country: None (occurrence: None)
  Receive Date: 20070703
  Receipt Date: 20070622
  Transmission Date: 20080115
  Serious: Yes (Other)
  Sender: FDA-Public Use
  Company Number: US-PFIZER INC-2007026530

PATIENT
  Age: 68 Year
  Sex: Male
  Weight: 90.7 kg

DRUGS (2)
  1. CHANTIX [Suspect]
     Indication: EX-SMOKER
  2. DIURETICS [Concomitant]
     Indication: HYPERTENSION
     Dosage: FREQ:EVERY OTHER DAY

REACTIONS (7)
  - ABNORMAL DREAMS [None]
  - ABNORMAL SENSATION IN EYE [None]
  - DECREASED APPETITE [None]
  - DYSKINESIA [None]
  - NAUSEA [None]
  - SOMNOLENCE [None]
  - STOMACH DISCOMFORT [None]
